FAERS Safety Report 7608497-0 (Version None)
Quarter: 2011Q3

REPORT INFORMATION
  Report Type: 
  Country: None (occurrence: None)
  Receive Date: 20110714
  Receipt Date: 20110712
  Transmission Date: 20111222
  Serious: Yes (Hospitalization)
  Sender: FDA-Public Use
  Company Number: US-BRISTOL-MYERS SQUIBB COMPANY-15897317

PATIENT
  Age: 63 Year
  Sex: Male
  Weight: 88 kg

DRUGS (11)
  1. LISINOPRIL AND HYDROCHLOROTHIAZIDE [Concomitant]
  2. ATIVAN [Concomitant]
     Dates: start: 20110408
  3. CISPLATIN [Suspect]
     Indication: NON-SMALL CELL LUNG CANCER
     Route: 042
     Dates: start: 20110318, end: 20110520
  4. VITAMIN B-12 [Concomitant]
     Dates: start: 20110309
  5. DEXAMETHASONE [Concomitant]
     Dates: start: 20110308
  6. LOVASTATIN [Concomitant]
     Dates: start: 20000101
  7. MULTI-VITAMIN [Concomitant]
     Dates: start: 20110309
  8. PEMETREXED DISODIUM [Suspect]
     Indication: NON-SMALL CELL LUNG CANCER
     Dosage: LAST DOSE:08APR11
     Route: 042
     Dates: start: 20110318
  9. FOLIC ACID [Concomitant]
     Dates: start: 20110309
  10. METOPROLOL [Concomitant]
     Dates: start: 20000101
  11. EMEND [Concomitant]
     Dates: start: 20110309

REACTIONS (1)
  - DYSPNOEA [None]
